FAERS Safety Report 4880466-3 (Version None)
Quarter: 2005Q4

REPORT INFORMATION
  Report Type: 
  Country: None (occurrence: None)
  Receive Date: 20051223
  Receipt Date: 20050906
  Transmission Date: 20060501
  Serious: No
  Sender: FDA-Public Use
  Company Number: 04P-163-0266000-00

PATIENT
  Age: 64 Year
  Sex: Female
  Weight: 68.9467 kg

DRUGS (2)
  1. HUMIRA [Suspect]
     Indication: RHEUMATOID ARTHRITIS
     Dosage: 40 MG, 1 IN 2 WK, SUBCUTANEOUS
     Route: 058
     Dates: start: 20040616, end: 20050906
  2. METHOTREXATE SODIUM [Concomitant]

REACTIONS (5)
  - DIARRHOEA [None]
  - FEELING HOT AND COLD [None]
  - MIGRAINE [None]
  - PYREXIA [None]
  - VOMITING [None]
